FAERS Safety Report 7970651-6 (Version None)
Quarter: 2011Q4

REPORT INFORMATION
  Report Type: 
  Country: None (occurrence: None)
  Receive Date: 20111122
  Receipt Date: 20110805
  Transmission Date: 20120403
  Serious: Yes (Other)
  Sender: FDA-Public Use
  Company Number: PHHY2011US65322

PATIENT
  Age: 39 Year
  Sex: Male
  Weight: 109 kg

DRUGS (5)
  1. MULTIVITAMINS (ASCORBIC ACID, ERGOCALCIFEROL, FOLIC ACID, NICOTINAMIDE [Concomitant]
  2. CIPROFLOXACIN [Concomitant]
  3. GILENYA [Suspect]
     Indication: RELAPSING-REMITTING MULTIPLE SCLEROSIS
     Dosage: 0.5 MG, QD, ORAL
     Route: 048
     Dates: start: 20110705, end: 20110723
  4. ZOVIRAX [Concomitant]
  5. BORAGE OIL (BORAGO OFFICINALIS OIL) [Concomitant]

REACTIONS (4)
  - PHOTOSENSITIVITY REACTION [None]
  - HEART RATE DECREASED [None]
  - HERPES ZOSTER [None]
  - BLOOD PRESSURE INCREASED [None]
